FAERS Safety Report 22609989 (Version 1)
Quarter: 2023Q2

REPORT INFORMATION
  Report Type: Report from Study
  Country: ES (occurrence: ES)
  Receive Date: 20230616
  Receipt Date: 20230616
  Transmission Date: 20230722
  Serious: Yes (Other)
  Sender: FDA-Public Use
  Company Number: None

PATIENT
  Age: 68 Year
  Sex: Female

DRUGS (5)
  1. METHYLPREDNISOLONE SODIUM SUCCINATE [Suspect]
     Active Substance: METHYLPREDNISOLONE SODIUM SUCCINATE
     Indication: Renal vasculitis
     Dosage: 500 MG FREQUENCY:2 (TOTAL)
     Route: 042
     Dates: start: 20221223, end: 20230110
  2. RITUXIMAB [Suspect]
     Active Substance: RITUXIMAB
     Indication: Renal vasculitis
     Dosage: 2 G, SINGLE
     Route: 042
     Dates: start: 20221228, end: 20230110
  3. ERTAPENEM [Suspect]
     Active Substance: ERTAPENEM
     Indication: Urinary tract infection
     Dosage: 500 MG, 1X/DAY
     Route: 042
     Dates: start: 20230109, end: 20230112
  4. CEFTRIAXONE [Suspect]
     Active Substance: CEFTRIAXONE
     Indication: Urinary tract infection
     Dosage: 1 G, 1X/DAY
     Route: 042
     Dates: start: 20230103, end: 20230108
  5. SULFAMETHOXAZOLE\TRIMETHOPRIM [Concomitant]
     Active Substance: SULFAMETHOXAZOLE\TRIMETHOPRIM
     Indication: Prophylaxis
     Dosage: 1 DF, WEEKLY
     Route: 048
     Dates: start: 20221222, end: 20221229

REACTIONS (1)
  - Thrombocytopenia [Recovered/Resolved]

NARRATIVE: CASE EVENT DATE: 20230110
